FAERS Safety Report 19685851 (Version 1)
Quarter: 2021Q3

REPORT INFORMATION
  Report Type: Spontaneous
  Country: AU (occurrence: AU)
  Receive Date: 20210811
  Receipt Date: 20210811
  Transmission Date: 20211014
  Serious: Yes (Hospitalization, Other)
  Sender: FDA-Public Use
  Company Number: AU-RECKITT BENCKISER HEALTHCARE INT LIMITED-RB-92814-2021

PATIENT

DRUGS (1)
  1. DETTOL (CHLOROXYLENOL) [Suspect]
     Active Substance: CHLOROXYLENOL
     Indication: COVID-19
     Dosage: UNK
     Route: 048
     Dates: start: 2021

REACTIONS (2)
  - Hepatic failure [Not Recovered/Not Resolved]
  - Intentional product misuse [Unknown]

NARRATIVE: CASE EVENT DATE: 2021
